FAERS Safety Report 6609452-X (Version None)
Quarter: 2010Q1

REPORT INFORMATION
  Report Type: 
  Country: None (occurrence: None)
  Receive Date: 20100302
  Receipt Date: 20100217
  Transmission Date: 20100710
  Serious: Yes (Hospitalization, Other)
  Sender: FDA-Public Use
  Company Number: US-JNJFOC-20100209077

PATIENT
  Sex: Female
  Weight: 93.9 kg

DRUGS (4)
  1. ORTHO TRI-CYCLEN [Suspect]
     Indication: CONTRACEPTION
     Route: 048
  2. ORTHO TRI-CYCLEN [Suspect]
     Route: 048
  3. ORTHO TRI-CYCLEN LO [Suspect]
     Indication: CONTRACEPTION
     Route: 048
  4. ORTHO EVRA [Concomitant]
     Indication: CONTRACEPTION
     Route: 062

REACTIONS (4)
  - DEEP VEIN THROMBOSIS [None]
  - NERVE INJURY [None]
  - OEDEMA PERIPHERAL [None]
  - VENOUS INJURY [None]
